FAERS Safety Report 13268143 (Version 7)
Quarter: 2017Q4

REPORT INFORMATION
  Report Type: Report from Study
  Country: US (occurrence: US)
  Receive Date: 20170224
  Receipt Date: 20171210
  Transmission Date: 20180320
  Serious: No
  Sender: FDA-Public Use
  Company Number: PHEH2017US005726

PATIENT
  Sex: Female

DRUGS (3)
  1. CLINDAMYCIN. [Suspect]
     Active Substance: CLINDAMYCIN
     Indication: TOOTH INFECTION
     Dosage: UNK
     Route: 065
     Dates: start: 20171024
  2. IBUPROFEN. [Suspect]
     Active Substance: IBUPROFEN
     Indication: TOOTH INFECTION
     Dosage: UNK
     Route: 065
     Dates: start: 20171024
  3. GILENYA [Suspect]
     Active Substance: FINGOLIMOD HYDROCHLORIDE
     Indication: MULTIPLE SCLEROSIS
     Dosage: 0.5 MG, QD
     Route: 048
     Dates: start: 20170125

REACTIONS (7)
  - Paraesthesia [Unknown]
  - Tooth infection [Unknown]
  - Depressed mood [Unknown]
  - Balance disorder [Unknown]
  - Weight decreased [Unknown]
  - Decreased appetite [Unknown]
  - Decreased interest [Unknown]
